FAERS Safety Report 22128539 (Version 1)
Quarter: 2023Q1

REPORT INFORMATION
  Report Type: Spontaneous
  Country: US (occurrence: US)
  Receive Date: 20230323
  Receipt Date: 20230323
  Transmission Date: 20230418
  Serious: No
  Sender: FDA-Public Use
  Company Number: US-ALLERGAN-2242844US

PATIENT
  Sex: Female

DRUGS (1)
  1. LINZESS [Suspect]
     Active Substance: LINACLOTIDE
     Indication: Hernia repair
     Dosage: UNK
     Route: 048

REACTIONS (4)
  - Oesophageal stenosis [Unknown]
  - Weight decreased [Unknown]
  - Eating disorder [Unknown]
  - Off label use [Unknown]
